FAERS Safety Report 6719635-6 (Version None)
Quarter: 2010Q2

REPORT INFORMATION
  Report Type: 
  Country: None (occurrence: None)
  Receive Date: 20100507
  Receipt Date: 20100427
  Transmission Date: 20101027
  Serious: Yes (Hospitalization)
  Sender: FDA-Public Use
  Company Number: 2010S1000351-001

PATIENT
  Age: 88 Year
  Sex: Male

DRUGS (7)
  1. LIVALO [Suspect]
     Dosage: 1MG PO
     Route: 048
     Dates: start: 20100421, end: 20100425
  2. OMEPRAZOLE [Suspect]
     Dosage: 10MG PO
     Route: 048
     Dates: start: 20100421, end: 20100425
  3. ATENOLOL [Concomitant]
  4. ACETYLSALICYLIC ACID [Concomitant]
  5. CLARITHROMYCIN [Concomitant]
  6. CLOPIDOGREL BISULFATE [Concomitant]
  7. HEPARIN SODIUM [Concomitant]

REACTIONS (3)
  - BLOOD CREATINE PHOSPHOKINASE INCREASED [None]
  - MYALGIA [None]
  - PYREXIA [None]
